FAERS Safety Report 6431990-3 (Version None)
Quarter: 2009Q4

REPORT INFORMATION
  Report Type: 
  Country: None (occurrence: None)
  Receive Date: 20091109
  Receipt Date: 20091026
  Transmission Date: 20100525
  Serious: No
  Sender: FDA-Public Use
  Company Number: US-JNJFOC-20091008740

PATIENT
  Sex: Male
  Weight: 83.92 kg

DRUGS (2)
  1. DURAGESIC-100 [Suspect]
     Indication: INTERVERTEBRAL DISC DEGENERATION
     Route: 062
     Dates: start: 20091001
  2. XANAX [Concomitant]
     Indication: DEPRESSION
     Route: 048
     Dates: start: 20060101

REACTIONS (3)
  - DRUG EFFECT DECREASED [None]
  - DRUG INEFFECTIVE [None]
  - INAPPROPRIATE SCHEDULE OF DRUG ADMINISTRATION [None]
